FAERS Safety Report 4640313-1 (Version None)
Quarter: 2005Q2

REPORT INFORMATION
  Report Type: 
  Country: None (occurrence: None)
  Receive Date: 20050420
  Receipt Date: 20040811
  Transmission Date: 20051028
  Serious: No
  Sender: FDA-Public Use
  Company Number: US-GLAXOSMITHKLINE-A0521827A

PATIENT
  Age: 62 Year
  Sex: Female

DRUGS (6)
  1. ESKALITH [Suspect]
     Indication: INFECTION
     Dosage: 450MG TWICE PER DAY
     Route: 048
     Dates: start: 20040705, end: 20040716
  2. TOPROL-XL [Concomitant]
  3. NEXIUM [Concomitant]
  4. LIPITOR [Concomitant]
  5. ASPIRIN [Concomitant]
  6. MULTI-VITAMIN [Concomitant]

REACTIONS (3)
  - HAEMORRHAGE URINARY TRACT [None]
  - MEDICATION ERROR [None]
  - VISUAL DISTURBANCE [None]
